FAERS Safety Report 10232506 (Version 3)
Quarter: 2017Q1

REPORT INFORMATION
  Report Type: Spontaneous
  Country: US (occurrence: US)
  Receive Date: 20140612
  Receipt Date: 20170320
  Transmission Date: 20170428
  Serious: Yes (Other)
  Sender: FDA-Public Use
  Company Number: US-JNJFOC-20140606617

PATIENT
  Sex: Male

DRUGS (2)
  1. RISPERIDONE. [Suspect]
     Active Substance: RISPERIDONE
     Indication: PRODUCT USED FOR UNKNOWN INDICATION
     Route: 048
  2. RISPERDAL M-TAB [Suspect]
     Active Substance: RISPERIDONE
     Indication: AUTISM
     Route: 048
     Dates: start: 201205, end: 201212

REACTIONS (6)
  - Galactorrhoea [Unknown]
  - Gynaecomastia [Unknown]
  - Tardive dyskinesia [Unknown]
  - Obesity [Unknown]
  - Hyperprolactinaemia [Unknown]
  - Injury [Unknown]

NARRATIVE: CASE EVENT DATE: 2012
